FAERS Safety Report 12506395 (Version 2)
Quarter: 2017Q2

REPORT INFORMATION
  Report Type: Spontaneous
  Country: US (occurrence: US)
  Receive Date: 20160628
  Receipt Date: 20170516
  Transmission Date: 20170830
  Serious: Yes (Hospitalization, Other)
  Sender: FDA-Public Use
  Company Number: US-B.I. PHARMACEUTICALS,INC./RIDGEFIELD-2016-BI-41241BP

PATIENT
  Sex: Female

DRUGS (9)
  1. SOTALOL. [Concomitant]
     Active Substance: SOTALOL
     Indication: ATRIAL FIBRILLATION
     Dosage: FORMULATION: CAPLET
     Route: 048
     Dates: start: 2013
  2. JANUVIA [Concomitant]
     Active Substance: SITAGLIPTIN PHOSPHATE
     Indication: DIABETES MELLITUS
     Dosage: FORMULATION: CAPLET
     Route: 048
  3. DIAZEPAM. [Concomitant]
     Active Substance: DIAZEPAM
     Indication: INSOMNIA
     Route: 048
  4. METOPROLOL. [Concomitant]
     Active Substance: METOPROLOL
     Indication: HYPERTENSION
     Dosage: FORMULATION: CAPLET
     Route: 048
  5. LISINOPRIL. [Concomitant]
     Active Substance: LISINOPRIL
     Indication: HYPERTENSION
     Dosage: FORMULATION: CAPLET
     Route: 048
  6. PRADAXA [Suspect]
     Active Substance: DABIGATRAN ETEXILATE MESYLATE
     Indication: ATRIAL FIBRILLATION
     Route: 048
     Dates: start: 2012
  7. METOPROLOL. [Concomitant]
     Active Substance: METOPROLOL
     Dosage: FORMULATION: CAPLET
     Route: 048
  8. LIBRAX [Concomitant]
     Active Substance: CHLORDIAZEPOXIDE HYDROCHLORIDE\CLIDINIUM BROMIDE
     Indication: ABDOMINAL DISCOMFORT
     Dosage: FORMULATION: CAPSULE
     Route: 048
     Dates: start: 201501
  9. METFORMIN [Concomitant]
     Active Substance: METFORMIN HYDROCHLORIDE
     Indication: DIABETES MELLITUS
     Dosage: FORMULATION: CAPLET
     Route: 048
     Dates: start: 201508

REACTIONS (13)
  - Road traffic accident [Recovered/Resolved with Sequelae]
  - Hangover [Recovered/Resolved with Sequelae]
  - Cerebellar stroke [Recovered/Resolved]
  - Headache [Recovered/Resolved with Sequelae]
  - Cerebrovascular accident [Recovered/Resolved]
  - Rash macular [Unknown]
  - Therapeutic response unexpected [Recovered/Resolved]
  - Contusion [Unknown]
  - Therapeutic response unexpected [Unknown]
  - Transient ischaemic attack [Unknown]
  - Feeling abnormal [Recovered/Resolved with Sequelae]
  - Skin texture abnormal [Unknown]
  - Vitamin B12 deficiency [Not Recovered/Not Resolved]

NARRATIVE: CASE EVENT DATE: 2013
